FAERS Safety Report 8125969-3 (Version None)
Quarter: 2012Q1

REPORT INFORMATION
  Report Type: 
  Country: None (occurrence: None)
  Receive Date: 20120209
  Receipt Date: 20120206
  Transmission Date: 20120608
  Serious: Yes (Other)
  Sender: FDA-Public Use
  Company Number: US-PFIZER INC-2012032753

PATIENT
  Sex: Male
  Weight: 145 kg

DRUGS (4)
  1. TOPROL-XL [Concomitant]
     Dosage: 25 MG, DAILY
  2. LIPITOR [Suspect]
     Indication: BLOOD CHOLESTEROL INCREASED
     Dosage: 80 MG, DAILY
     Dates: start: 20040101
  3. LISINOPRIL [Concomitant]
     Dosage: 10 MG, 2X/DAY
  4. PLAVIX [Concomitant]
     Dosage: 75 MG, DAILY

REACTIONS (1)
  - ARTERIAL OCCLUSIVE DISEASE [None]
